FAERS Safety Report 21312159 (Version 1)
Quarter: 2022Q3

REPORT INFORMATION
  Report Type: Spontaneous
  Country: US (occurrence: None)
  Receive Date: 20220909
  Receipt Date: 20220909
  Transmission Date: 20221027
  Serious: No
  Sender: FDA-Public Use
  Company Number: US-ARIS GLOBAL-202204-0701

PATIENT
  Age: 76 Year
  Sex: Female

DRUGS (18)
  1. OXERVATE [Suspect]
     Active Substance: CENEGERMIN-BKBJ
     Indication: Neurotrophic keratopathy
     Route: 047
     Dates: start: 20220412
  2. FAMCICLOVIR [Concomitant]
     Active Substance: FAMCICLOVIR
  3. DILTIAZEM [Concomitant]
     Active Substance: DILTIAZEM
     Dosage: 24 HOUR EXTENDED RELEASE (CONTROLLED DELIVERY)
  4. PANTOPRAZOLE SODIUM [Concomitant]
     Active Substance: PANTOPRAZOLE SODIUM
  5. SOTALOL [Concomitant]
     Active Substance: SOTALOL
  6. SPIRONOLACTONE [Concomitant]
     Active Substance: SPIRONOLACTONE
  7. VITAMIN D3 [Concomitant]
     Active Substance: CHOLECALCIFEROL
     Dosage: 10(400)/ML DROPS
  8. FAMOTIDINE [Concomitant]
     Active Substance: FAMOTIDINE
  9. ROSUVASTATIN CALCIUM [Concomitant]
     Active Substance: ROSUVASTATIN CALCIUM
  10. ASPIRIN [Concomitant]
     Active Substance: ASPIRIN
  11. GABAPENTIN [Concomitant]
     Active Substance: GABAPENTIN
  12. IRON [Concomitant]
     Active Substance: IRON
     Dosage: 325(65) MG TABLET
  13. ERYTHROMYCIN [Concomitant]
     Active Substance: ERYTHROMYCIN
     Dosage: 5 MG/G OINTMENT
  14. DUREZOL [Concomitant]
     Active Substance: DIFLUPREDNATE
  15. LUMIGAN [Concomitant]
     Active Substance: BIMATOPROST
  16. TOBRAMYCIN [Concomitant]
     Active Substance: TOBRAMYCIN
  17. REFRESH CLASSIC [Concomitant]
     Active Substance: POLYVINYL ALCOHOL\POVIDONE
  18. COMBIGAN [Concomitant]
     Active Substance: BRIMONIDINE TARTRATE\TIMOLOL MALEATE
     Dosage: 0.2%-0.5% DROPS

REACTIONS (4)
  - Ocular discomfort [Unknown]
  - Periorbital pain [Unknown]
  - Rhinorrhoea [Unknown]
  - Foreign body sensation in eyes [Unknown]

NARRATIVE: CASE EVENT DATE: 20220401
